FAERS Safety Report 7366491-1 (Version None)
Quarter: 2011Q1

REPORT INFORMATION
  Report Type: 
  Country: None (occurrence: None)
  Receive Date: 20110322
  Receipt Date: 20100914
  Transmission Date: 20110831
  Serious: Yes (Hospitalization)
  Sender: FDA-Public Use
  Company Number: US-BAYER-201018871NA

PATIENT
  Sex: Female
  Weight: 90.703 kg

DRUGS (20)
  1. YAZ [Suspect]
     Indication: CONTRACEPTION
  2. YASMIN [Suspect]
     Indication: ACNE
  3. CLOTRIMAZOL [Concomitant]
     Dosage: UNK
     Dates: start: 20060514
  4. OCELLA [Suspect]
     Indication: ACNE
  5. ORTHO EVRA [Concomitant]
     Dosage: UNK
     Dates: start: 20040311
  6. NSAID'S [Concomitant]
  7. JUNEL FE [Concomitant]
     Dosage: UNK UNK, QD
     Dates: start: 20060519
  8. YASMIN [Suspect]
     Indication: CONTRACEPTION
     Route: 048
  9. YASMIN [Suspect]
     Indication: PREMENSTRUAL SYNDROME
  10. UNCODEABLE ^UNCLASSIFIABLE^ [Concomitant]
  11. YAZ [Suspect]
     Indication: ACNE
  12. OCELLA [Suspect]
     Indication: PREMENSTRUAL SYNDROME
  13. HERBAL PREPARATION [Concomitant]
  14. AZITHROMYCIN [Concomitant]
     Dosage: 250 MG, QD
     Dates: start: 20060928
  15. DARVON [Concomitant]
     Indication: PAIN
  16. YAZ [Suspect]
     Indication: PREMENSTRUAL SYNDROME
     Dosage: UNK
     Route: 048
     Dates: start: 20070621
  17. OCELLA [Suspect]
     Indication: CONTRACEPTION
  18. NUVARING [Concomitant]
     Dosage: UNK
     Dates: start: 20060125
  19. UNCODEABLE ^UNCLASSIFIABLE^ [Concomitant]
  20. METRONIDAZOLE [Concomitant]
     Dosage: 500 MG, BID
     Dates: start: 20061002

REACTIONS (5)
  - PAIN [None]
  - CEREBROVASCULAR ACCIDENT [None]
  - DEEP VEIN THROMBOSIS [None]
  - PULMONARY EMBOLISM [None]
  - MYOCARDIAL INFARCTION [None]
